FAERS Safety Report 6833465-6 (Version None)
Quarter: 2010Q3

REPORT INFORMATION
  Report Type: 
  Country: None (occurrence: None)
  Receive Date: 20100712
  Receipt Date: 20070326
  Transmission Date: 20110219
  Serious: No
  Sender: FDA-Public Use
  Company Number: US-PFIZER INC-2007024722

PATIENT
  Sex: Male
  Weight: 80.74 kg

DRUGS (7)
  1. CHANTIX [Suspect]
     Indication: SMOKING CESSATION THERAPY
     Dates: start: 20070301
  2. CRESTOR [Concomitant]
  3. ZETIA [Concomitant]
  4. TRICOR [Concomitant]
  5. ACETYLSALICYLIC ACID [Concomitant]
  6. HYDROCHLOROTHIAZIDE [Concomitant]
  7. TOPROL-XL [Concomitant]

REACTIONS (2)
  - INTENTIONAL DRUG MISUSE [None]
  - NAUSEA [None]
